FAERS Safety Report 7513351-9 (Version None)
Quarter: 2011Q2

REPORT INFORMATION
  Report Type: 
  Country: None (occurrence: None)
  Receive Date: 20110531
  Receipt Date: 20110520
  Transmission Date: 20111010
  Serious: Yes (Hospitalization)
  Sender: FDA-Public Use
  Company Number: FR-B.I. PHARMACEUTICALS,INC./RIDGEFIELD-2011-FF-00092FF

PATIENT
  Sex: Female
  Weight: 73 kg

DRUGS (5)
  1. TRAMADOL HCL [Concomitant]
     Dosage: 300 MG
     Route: 048
     Dates: start: 20110126
  2. AMLODIPINE BESYLATE [Concomitant]
     Dosage: 5 MG
     Route: 048
     Dates: start: 20110125
  3. ATORVASTATIN [Concomitant]
     Route: 048
     Dates: start: 20110125
  4. ACETAMINOPHEN [Concomitant]
     Dosage: 3000 MG
     Route: 048
     Dates: start: 20110126
  5. PRADAXA [Suspect]
     Indication: THROMBOSIS PROPHYLAXIS
     Dosage: 150 MG
     Route: 048
     Dates: start: 20110125, end: 20110130

REACTIONS (2)
  - DEEP VEIN THROMBOSIS [None]
  - THROMBOPHLEBITIS SUPERFICIAL [None]
